FAERS Safety Report 9555480 (Version 1)
Quarter: 2013Q3

REPORT INFORMATION
  Report Type: Spontaneous
  Country: US (occurrence: US)
  Receive Date: 20130926
  Receipt Date: 20130926
  Transmission Date: 20140515
  Serious: No
  Sender: FDA-Public Use
  Company Number: US-TEVA-434411USA

PATIENT
  Age: 57 Year
  Sex: Female

DRUGS (2)
  1. PROAIR HFA [Suspect]
     Indication: DYSPNOEA
     Route: 055
  2. ADVAIR [Concomitant]
     Indication: DYSPNOEA

REACTIONS (2)
  - Dyspnoea [Not Recovered/Not Resolved]
  - Intentional overdose [Unknown]
